FAERS Safety Report 14354845 (Version 1)
Quarter: 2018Q1

REPORT INFORMATION
  Report Type: Spontaneous
  Country: AT (occurrence: AT)
  Receive Date: 20180105
  Receipt Date: 20180105
  Transmission Date: 20180509
  Serious: Yes (Other)
  Sender: FDA-Public Use
  Company Number: AT-AMGEN-AUTNI2017192752

PATIENT
  Age: 78 Year
  Sex: Male
  Weight: 64 kg

DRUGS (3)
  1. XGEVA [Suspect]
     Active Substance: DENOSUMAB
     Indication: METASTASES TO BONE
     Dosage: 120 MG
     Route: 058
  2. CABAZITAXEL [Suspect]
     Active Substance: CABAZITAXEL
     Dosage: 35 MG, CYCLICAL
     Route: 042
     Dates: start: 20160804
  3. CABAZITAXEL [Suspect]
     Active Substance: CABAZITAXEL
     Indication: PROSTATE CANCER METASTATIC
     Dosage: 20 MG/M2, CYCLICAL
     Route: 042
     Dates: start: 20160118

REACTIONS (2)
  - Osteonecrosis of jaw [Recovered/Resolved]
  - Abdominal pain [Recovered/Resolved]

NARRATIVE: CASE EVENT DATE: 20160806
